FAERS Safety Report 22877448 (Version 4)
Quarter: 2023Q4

REPORT INFORMATION
  Report Type: Spontaneous
  Country: US (occurrence: US)
  Receive Date: 20230829
  Receipt Date: 20231110
  Transmission Date: 20240110
  Serious: Yes (Other)
  Sender: FDA-Public Use
  Company Number: US-BEH-2023162580

PATIENT
  Age: 30 Year
  Sex: Female

DRUGS (16)
  1. HAEGARDA [Suspect]
     Active Substance: HUMAN C1-ESTERASE INHIBITOR
     Indication: Hereditary angioedema
     Dosage: 8000 INTERNATIONAL UNIT, BIW
     Route: 058
     Dates: start: 202306
  2. HAEGARDA [Suspect]
     Active Substance: HUMAN C1-ESTERASE INHIBITOR
     Indication: Prophylaxis
     Dosage: 60 INTERNATIONAL UNIT/KILOGRAM ,EVERY 3-4 DAYS
     Route: 058
  3. HAEGARDA [Suspect]
     Active Substance: HUMAN C1-ESTERASE INHIBITOR
     Dosage: 8000 INTERNATIONAL UNIT, BIW
     Route: 058
     Dates: start: 20230103, end: 20230415
  4. HAEGARDA [Suspect]
     Active Substance: HUMAN C1-ESTERASE INHIBITOR
     Dosage: 8000 INTERNATIONAL UNIT, BIW
     Route: 058
     Dates: start: 20230303, end: 20230425
  5. HAEGARDA [Suspect]
     Active Substance: HUMAN C1-ESTERASE INHIBITOR
     Dosage: 8000 INTERNATIONAL UNIT, BIW
     Route: 058
     Dates: start: 202201
  6. BERINERT [Suspect]
     Active Substance: HUMAN C1-ESTERASE INHIBITOR
     Indication: Hereditary angioedema
     Dosage: 2500 INTERNATIONAL UNIT, PRN
     Route: 042
     Dates: start: 202306
  7. BERINERT [Suspect]
     Active Substance: HUMAN C1-ESTERASE INHIBITOR
     Indication: Hereditary angioedema
     Dosage: 2500 INTERNATIONAL UNIT, PRN
     Route: 042
     Dates: start: 202306
  8. BERINERT [Suspect]
     Active Substance: HUMAN C1-ESTERASE INHIBITOR
     Indication: Hereditary angioedema
     Dosage: 1 DOSAGE FORM
     Route: 065
     Dates: start: 20230821
  9. BERINERT [Suspect]
     Active Substance: HUMAN C1-ESTERASE INHIBITOR
     Indication: Hereditary angioedema
     Dosage: 1 DOSAGE FORM
     Route: 065
     Dates: start: 20230821
  10. BERINERT [Suspect]
     Active Substance: HUMAN C1-ESTERASE INHIBITOR
     Indication: Hereditary angioedema
     Dosage: 2500 INTERNATIONAL UNIT, PRN
     Route: 042
     Dates: start: 20230303, end: 20230425
  11. BERINERT [Suspect]
     Active Substance: HUMAN C1-ESTERASE INHIBITOR
     Indication: Hereditary angioedema
     Dosage: 2500 INTERNATIONAL UNIT, PRN
     Route: 042
     Dates: start: 20230303, end: 20230425
  12. BERINERT [Suspect]
     Active Substance: HUMAN C1-ESTERASE INHIBITOR
     Dosage: 1 DOSAGE FORM
     Route: 065
     Dates: start: 20231030
  13. BERINERT [Suspect]
     Active Substance: HUMAN C1-ESTERASE INHIBITOR
     Dosage: 1 DOSAGE FORM
     Route: 065
     Dates: start: 20231030
  14. ADVAIR HFA [Concomitant]
     Active Substance: FLUTICASONE PROPIONATE\SALMETEROL XINAFOATE
     Dosage: 1 DOSAGE FORM, BID
     Route: 055
     Dates: start: 20230303, end: 20230413
  15. EPIPEN [Concomitant]
     Active Substance: EPINEPHRINE
     Dosage: 0.3 MILLIGRAM (0.3 ML)
     Route: 030
     Dates: start: 20230303
  16. REGLAN [Concomitant]
     Active Substance: METOCLOPRAMIDE HYDROCHLORIDE
     Dosage: 10 MILLIGRAM, TID
     Dates: start: 20221208, end: 20230411

REACTIONS (28)
  - Hereditary angioedema [Recovered/Resolved]
  - Insurance issue [Recovered/Resolved]
  - Maternal exposure during pregnancy [Recovered/Resolved]
  - Hereditary angioedema [Unknown]
  - Treatment delayed [Unknown]
  - Maternal exposure during pregnancy [Unknown]
  - Product distribution issue [Unknown]
  - Hereditary angioedema [Unknown]
  - Treatment delayed [Unknown]
  - Maternal exposure during pregnancy [Unknown]
  - Product distribution issue [Unknown]
  - Hereditary angioedema [Unknown]
  - Product distribution issue [Unknown]
  - Treatment delayed [Unknown]
  - Maternal exposure during pregnancy [Recovered/Resolved]
  - Hereditary angioedema [Recovered/Resolved]
  - Maternal exposure during pregnancy [Unknown]
  - Asthma [Unknown]
  - Wheezing [Unknown]
  - Maternal exposure during pregnancy [Unknown]
  - Wheezing [Unknown]
  - Cough [Unknown]
  - Hereditary angioedema [Unknown]
  - Swelling [Unknown]
  - Intentional dose omission [Unknown]
  - Maternal exposure during pregnancy [Unknown]
  - Ill-defined disorder [Unknown]
  - Maternal exposure during pregnancy [Unknown]

NARRATIVE: CASE EVENT DATE: 20230821
